FAERS Safety Report 14709411 (Version 1)
Quarter: 2018Q2

REPORT INFORMATION
  Report Type: Spontaneous
  Country: ES (occurrence: ES)
  Receive Date: 20180403
  Receipt Date: 20180403
  Transmission Date: 20180711
  Serious: Yes (Other)
  Sender: FDA-Public Use
  Company Number: ES-ASTRAZENECA-2018SE38086

PATIENT
  Age: 88 Year
  Sex: Female

DRUGS (5)
  1. DONEPEZIL. [Interacting]
     Active Substance: DONEPEZIL
     Dosage: 10.0MG ONCE/SINGLE ADMINISTRATION
     Route: 048
     Dates: start: 20180301, end: 20180301
  2. QUETIAPINE. [Suspect]
     Active Substance: QUETIAPINE
     Dosage: 12.5MG ONCE/SINGLE ADMINISTRATION
     Route: 048
     Dates: start: 20180301, end: 20180301
  3. MEMANTINE. [Interacting]
     Active Substance: MEMANTINE
     Dosage: 20.0MG ONCE/SINGLE ADMINISTRATION
     Route: 048
     Dates: start: 20180301, end: 20180301
  4. EUTIROX [Interacting]
     Active Substance: LEVOTHYROXINE SODIUM
     Dosage: 125.0MG ONCE/SINGLE ADMINISTRATION
     Route: 048
     Dates: start: 20180301, end: 20180301
  5. ENALAPRIL [Interacting]
     Active Substance: ENALAPRIL
     Dosage: 5.0MG ONCE/SINGLE ADMINISTRATION
     Route: 048
     Dates: start: 20180301, end: 20180301

REACTIONS (5)
  - Wrong patient received medication [Recovered/Resolved]
  - Nausea [Recovered/Resolved]
  - Hypertension [Recovered/Resolved]
  - Agitation [Recovered/Resolved]
  - Vomiting [Recovered/Resolved]

NARRATIVE: CASE EVENT DATE: 20180301
